FAERS Safety Report 5431588-X (Version None)
Quarter: 2007Q3

REPORT INFORMATION
  Report Type: 
  Country: None (occurrence: None)
  Receive Date: 20070830
  Receipt Date: 20070822
  Transmission Date: 20080115
  Serious: Yes (Hospitalization)
  Sender: FDA-Public Use
  Company Number: US-ABBOTT-07P-163-0414942-00

PATIENT
  Sex: Male
  Weight: 91.8 kg

DRUGS (5)
  1. NIASPAN [Suspect]
     Indication: BLOOD TRIGLYCERIDES INCREASED
     Route: 048
     Dates: start: 20061102, end: 20070201
  2. NIASPAN [Suspect]
     Route: 048
     Dates: start: 20070201, end: 20070517
  3. NIASPAN [Suspect]
     Route: 048
     Dates: start: 20070517, end: 20070730
  4. NIASPAN [Suspect]
     Dosage: (COATED)
     Route: 048
     Dates: start: 20070730, end: 20070803
  5. NIASPAN [Suspect]
     Dosage: (COATED)
     Route: 048
     Dates: start: 20070803, end: 20070806

REACTIONS (10)
  - ASTHENOPIA [None]
  - BLOOD CREATINE PHOSPHOKINASE INCREASED [None]
  - DYSPNOEA [None]
  - FEELING HOT [None]
  - FLUSHING [None]
  - PALPITATIONS [None]
  - PRURITUS GENERALISED [None]
  - SENSORY DISTURBANCE [None]
  - TREMOR [None]
  - WEIGHT INCREASED [None]
